FAERS Safety Report 13905180 (Version 1)
Quarter: 2017Q3

REPORT INFORMATION
  Report Type: Not Available
  Country: None (occurrence: US)
  Receive Date: 20170825
  Receipt Date: 20170825
  Transmission Date: 20171127
  Serious: No
  Sender: FDA-Public Use
  Company Number: US-AKORN-49747

PATIENT
  Sex: Male

DRUGS (1)
  1. FLUTICASONE PROPIONATE NASAL SPRAY [Suspect]
     Active Substance: FLUTICASONE PROPIONATE

REACTIONS (2)
  - Nausea [Recovered/Resolved]
  - Parosmia [Recovered/Resolved]
